FAERS Safety Report 16623769 (Version 1)
Quarter: 2019Q3

REPORT INFORMATION
  Report Type: Spontaneous
  Country: US (occurrence: US)
  Receive Date: 20190724
  Receipt Date: 20190724
  Transmission Date: 20191004
  Serious: No
  Sender: FDA-Public Use
  Company Number: US-ELI_LILLY_AND_COMPANY-US201907010918

PATIENT
  Age: 40 Year
  Sex: Female

DRUGS (1)
  1. BARICITINIB 2MG [Suspect]
     Active Substance: BARICITINIB
     Indication: PRODUCT USED FOR UNKNOWN INDICATION
     Dosage: 2 MG, UNKNOWN
     Route: 065
     Dates: start: 20190326, end: 20190412

REACTIONS (1)
  - Herpes virus infection [Recovered/Resolved]

NARRATIVE: CASE EVENT DATE: 20190407
